FAERS Safety Report 9400193 (Version 1)
Quarter: 2013Q3

REPORT INFORMATION
  Report Type: Spontaneous
  Country: US (occurrence: US)
  Receive Date: 20130715
  Receipt Date: 20130715
  Transmission Date: 20140515
  Serious: Yes (Hospitalization)
  Sender: FDA-Public Use
  Company Number: US-BAYER-2013-085494

PATIENT
  Age: 40 Year
  Sex: Female

DRUGS (9)
  1. GIANVI [Suspect]
  2. YAZ [Suspect]
  3. LEVAQUIN [Concomitant]
     Indication: URINARY TRACT INFECTION
  4. RETIN A [Concomitant]
  5. ALBUTEROL [Concomitant]
  6. NORCO [Concomitant]
  7. COLACE [Concomitant]
  8. SENNA [Concomitant]
  9. DILTIAZEM ER [Concomitant]

REACTIONS (2)
  - Deep vein thrombosis [None]
  - Pelvic venous thrombosis [None]
